FAERS Safety Report 4706379-5 (Version None)
Quarter: 2005Q3

REPORT INFORMATION
  Report Type: 
  Country: None (occurrence: None)
  Receive Date: 20050705
  Receipt Date: 20050613
  Transmission Date: 20060218
  Serious: Yes (Other)
  Sender: FDA-Public Use
  Company Number: GB-BRISTOL-MYERS SQUIBB COMPANY-13002837

PATIENT
  Age: 49 Year
  Sex: Male
  Weight: 69 kg

DRUGS (6)
  1. ABILIFY [Suspect]
     Indication: PSYCHOTIC DISORDER
     Dosage: INCREASED TO 10 MG/DAY.
     Route: 048
     Dates: start: 20050131, end: 20050623
  2. VALPROATE SODIUM [Concomitant]
     Indication: EPILEPSY
     Route: 048
  3. OMEPRAZOLE [Concomitant]
     Indication: OESOPHAGEAL DISCOMFORT
     Route: 048
     Dates: start: 20040106
  4. CITALOPRAM [Concomitant]
     Indication: DEPRESSION
     Route: 048
     Dates: start: 20040505
  5. ZOPICLONE [Concomitant]
     Indication: INSOMNIA
     Route: 048
     Dates: start: 20050303
  6. LORAZEPAM [Concomitant]
     Indication: AGITATION
     Route: 048
     Dates: start: 20040119

REACTIONS (6)
  - AGITATION [None]
  - CONVULSION [None]
  - EXCITABILITY [None]
  - INSOMNIA [None]
  - SEDATION [None]
  - WEIGHT DECREASED [None]
